FAERS Safety Report 5960541-2 (Version None)
Quarter: 2008Q4

REPORT INFORMATION
  Report Type: 
  Country: None (occurrence: None)
  Receive Date: 20081120
  Receipt Date: 20080716
  Transmission Date: 20090506
  Serious: No
  Sender: FDA-Public Use
  Company Number: US-ABBOTT-08P-163-0455659-00

PATIENT
  Sex: Female
  Weight: 68.1 kg

DRUGS (2)
  1. BIAXIN [Suspect]
     Indication: EAR INFECTION
     Route: 048
     Dates: start: 19900101, end: 19900101
  2. BIAXIN [Suspect]
     Indication: UPPER RESPIRATORY TRACT INFECTION

REACTIONS (4)
  - ORAL MUCOSAL EXFOLIATION [None]
  - OROPHARYNGEAL BLISTERING [None]
  - TREMOR [None]
  - VOMITING [None]
